FAERS Safety Report 14404257 (Version 5)
Quarter: 2019Q1

REPORT INFORMATION
  Report Type: Spontaneous
  Country: US (occurrence: US)
  Receive Date: 20180117
  Receipt Date: 20190220
  Transmission Date: 20190417
  Serious: Yes (Hospitalization, Other)
  Sender: FDA-Public Use
  Company Number: US-DSJP-DSU-2017-138548

PATIENT

DRUGS (1)
  1. BENICAR [Suspect]
     Active Substance: OLMESARTAN MEDOXOMIL
     Indication: PRODUCT USED FOR UNKNOWN INDICATION
     Dosage: 20 MG, QD
     Route: 048
     Dates: start: 20100101

REACTIONS (7)
  - Large intestine polyp [Recovered/Resolved]
  - Gastroenteritis viral [Recovering/Resolving]
  - Lower gastrointestinal haemorrhage [Unknown]
  - Sprue-like enteropathy [Recovering/Resolving]
  - Haemorrhoids [Not Recovered/Not Resolved]
  - Crohn^s disease [Unknown]
  - Diverticulum [Not Recovered/Not Resolved]

NARRATIVE: CASE EVENT DATE: 20100127
